FAERS Safety Report 4585768-6 (Version None)
Quarter: 2005Q1

REPORT INFORMATION
  Report Type: 
  Country: None (occurrence: None)
  Receive Date: 20050128
  Receipt Date: 20050128
  Transmission Date: 20050727
  Serious: Yes (Life-Threatening, Hospitalization)
  Sender: FDA-Public Use
  Company Number: None

PATIENT
  Sex: Male
  Weight: 104.3273 kg

DRUGS (13)
  1. DEPAKOTE ER [Suspect]
     Indication: SCHIZOPHRENIA
     Dosage: 1000 MG DAILY ORAL
     Route: 048
     Dates: start: 20040401, end: 20041214
  2. NOVOLIN R [Concomitant]
  3. AMBIEN [Concomitant]
  4. ZYPREXA [Concomitant]
  5. GLUCOPHAGE [Concomitant]
  6. NEURONTIN [Concomitant]
  7. PEPCID [Concomitant]
  8. AVANDIA [Concomitant]
  9. LOPRESSOR [Concomitant]
  10. LANOXIN [Concomitant]
  11. VASOTEC [Concomitant]
  12. ATIVAN [Concomitant]
  13. UNASYN [Concomitant]

REACTIONS (2)
  - PANCREATITIS HAEMORRHAGIC [None]
  - PANCREATITIS NECROTISING [None]
